FAERS Safety Report 6898319-8 (Version None)
Quarter: 2010Q3

REPORT INFORMATION
  Report Type: 
  Country: None (occurrence: None)
  Receive Date: 20100802
  Receipt Date: 20071016
  Transmission Date: 20110219
  Serious: Yes (Hospitalization)
  Sender: FDA-Public Use
  Company Number: US-PFIZER INC-2007018433

PATIENT
  Sex: Male
  Weight: 76.7 kg

DRUGS (2)
  1. LYRICA [Suspect]
     Dates: start: 20070304
  2. CARBAMAZEPINE [Suspect]

REACTIONS (5)
  - ANTICONVULSANT DRUG LEVEL DECREASED [None]
  - DIZZINESS [None]
  - NAUSEA [None]
  - OEDEMA PERIPHERAL [None]
  - RASH [None]
